FAERS Safety Report 4680870-2 (Version None)
Quarter: 2005Q2

REPORT INFORMATION
  Report Type: 
  Country: None (occurrence: None)
  Receive Date: 20050601
  Receipt Date: 20050601
  Transmission Date: 20051028
  Serious: Yes (Other)
  Sender: FDA-Public Use
  Company Number: None

PATIENT
  Age: 53 Year
  Sex: Female

DRUGS (2)
  1. PAXIL [Suspect]
     Indication: DEPRESSION
     Dosage: 40 MG PO QD
     Route: 048
     Dates: start: 20050420, end: 20050428
  2. PAXIL [Concomitant]

REACTIONS (3)
  - FEAR [None]
  - NIGHTMARE [None]
  - SCREAMING [None]
